FAERS Safety Report 24229902 (Version 1)
Quarter: 2024Q3

REPORT INFORMATION
  Report Type: Spontaneous
  Country: US (occurrence: None)
  Receive Date: 20240820
  Receipt Date: 20240820
  Transmission Date: 20241017
  Serious: Yes (Hospitalization)
  Sender: Public
  Company Number: None

PATIENT
  Sex: Male
  Weight: 115.2 kg

DRUGS (1)
  1. CISPLATIN [Suspect]
     Active Substance: CISPLATIN

REACTIONS (7)
  - Nausea [None]
  - Vomiting [None]
  - Headache [None]
  - Weight decreased [None]
  - Pleuritic pain [None]
  - Mucosal inflammation [None]
  - Feeding disorder [None]

NARRATIVE: CASE EVENT DATE: 20240807
